FAERS Safety Report 24351605 (Version 2)
Quarter: 2025Q1

REPORT INFORMATION
  Report Type: Report from Study
  Country: US (occurrence: US)
  Receive Date: 20240923
  Receipt Date: 20250303
  Transmission Date: 20250409
  Serious: Yes (Hospitalization)
  Sender: ROCHE
  Company Number: US-ROCHE-3558657

PATIENT
  Age: 70 Year
  Sex: Female

DRUGS (1)
  1. HERCEPTIN [Suspect]
     Active Substance: TRASTUZUMAB
     Indication: Endometrial cancer
     Dosage: INFUSE 2MG/KG ?FORM: VIAL
     Route: 042

REACTIONS (3)
  - Off label use [Unknown]
  - Cardiac failure [Unknown]
  - Product dispensing error [Unknown]
